FAERS Safety Report 9848976 (Version 1)
Quarter: 2013Q4

REPORT INFORMATION
  Report Type: Spontaneous
  Country: US (occurrence: None)
  Receive Date: 20131226
  Receipt Date: 20131226
  Transmission Date: 20140711
  Serious: Yes (Other)
  Sender: FDA-Public Use
  Company Number: PHEH2013US010885

PATIENT
  Age: 52 Year
  Sex: Female

DRUGS (14)
  1. OXCARBAZEPINE (OXCARBAZEPINE) UNKNOWN [Suspect]
  2. OXYCONTIN (OXYCODONE HYDROCHLORIDE) [Concomitant]
  3. TRILEPTAL (OXCARBAZEPINE) [Concomitant]
  4. XANAX (ALPRAZOLAM) [Concomitant]
  5. ZENPEP (PANCRELIPASE) [Concomitant]
  6. PRILOSEC (OMEPRAZOLE) [Concomitant]
  7. AUGMENTINE (AMOXICILLIN SODIUM, AMOXICILLIN TRIHYDRATE, CLAVULANATE POTASSIUM) [Concomitant]
  8. MACROBID (NITROFURANTOIN) [Concomitant]
  9. PREMARIN (ESTROGENS CONJUGATED) [Concomitant]
  10. LIDOCAINE (LIDOCAINE) [Concomitant]
  11. ARTHROTEC (DICLOFENAC SODIUM, MISOPROSTOL) [Concomitant]
  12. AMBIEN (ZOLPIDEM TARTRATE) [Concomitant]
  13. ZOFRAN (ONDANSETRON HYDROCHLORIDE) [Concomitant]
  14. TRIAMCINOLONE (TRIAMCINOLONE) [Concomitant]

REACTIONS (3)
  - Convulsion [None]
  - Hypersensitivity [None]
  - Swollen tongue [None]
